FAERS Safety Report 9861121 (Version 2)
Quarter: 2014Q1

REPORT INFORMATION
  Report Type: Spontaneous
  Country: US (occurrence: US)
  Receive Date: 20140202
  Receipt Date: 20140202
  Transmission Date: 20141002
  Serious: No
  Sender: FDA-Public Use
  Company Number: US-ALLERGAN-1303598US

PATIENT
  Age: 55 Year
  Sex: Male

DRUGS (1)
  1. BOTOX COSMETIC [Suspect]
     Indication: OFF LABEL USE
     Dosage: 40 UNITS, SINGLE
     Route: 030
     Dates: start: 20130222, end: 20130222

REACTIONS (4)
  - Off label use [Unknown]
  - Scleral hyperaemia [Recovered/Resolved]
  - Eyelid oedema [Recovered/Resolved]
  - Eyelid oedema [Recovered/Resolved]
